FAERS Safety Report 7183985-2 (Version None)
Quarter: 2010Q4

REPORT INFORMATION
  Report Type: 
  Country: None (occurrence: None)
  Receive Date: 20101222
  Receipt Date: 20101220
  Transmission Date: 20110411
  Serious: Yes (Death)
  Sender: FDA-Public Use
  Company Number: KW-TEVA-257698ISR

PATIENT
  Age: 8 Year
  Sex: Male

DRUGS (3)
  1. METHOTREXATE [Suspect]
     Indication: BONE SARCOMA
     Dosage: 144 G/M2
  2. CISPLATIN [Suspect]
     Indication: BONE SARCOMA
  3. DOXORUBICIN HCL [Suspect]
     Indication: BONE SARCOMA

REACTIONS (1)
  - ACUTE MYELOID LEUKAEMIA [None]
